FAERS Safety Report 9509667 (Version 2)
Quarter: 2013Q3

REPORT INFORMATION
  Report Type: Spontaneous
  Country: US (occurrence: US)
  Receive Date: 20130909
  Receipt Date: 20130909
  Transmission Date: 20140515
  Serious: No
  Sender: FDA-Public Use
  Company Number: US-BRISTOL-MYERS SQUIBB COMPANY-17193673

PATIENT
  Age: 41 Year
  Sex: Male
  Weight: 102.04 kg

DRUGS (2)
  1. ABILIFY [Suspect]
     Indication: SCHIZOAFFECTIVE DISORDER
     Dosage: DOSE REDUCED TO 10 MG FROM AUG/SEP12
  2. ABILIFY [Suspect]
     Indication: DEPRESSION
     Dosage: DOSE REDUCED TO 10 MG FROM AUG/SEP12

REACTIONS (4)
  - Weight increased [Not Recovered/Not Resolved]
  - Dysstasia [Not Recovered/Not Resolved]
  - Confusional state [Not Recovered/Not Resolved]
  - Muscle twitching [Not Recovered/Not Resolved]
